FAERS Safety Report 5099346-6 (Version None)
Quarter: 2006Q3

REPORT INFORMATION
  Report Type: 
  Country: None (occurrence: None)
  Receive Date: 20060727
  Receipt Date: 20060601
  Transmission Date: 20061208
  Serious: No
  Sender: FDA-Public Use
  Company Number: FACT0600265

PATIENT
  Age: 74 Year
  Sex: Female

DRUGS (5)
  1. FACTIVE [Suspect]
     Indication: RESPIRATORY TRACT INFECTION BACTERIAL
     Dosage: 320 MG, QD, ORAL
     Route: 048
     Dates: start: 20060525, end: 20060529
  2. PRAVACHOL [Concomitant]
  3. DIGOXIN [Concomitant]
  4. WARFARIN SODIUM [Concomitant]
  5. ACCUPRIL [Concomitant]

REACTIONS (1)
  - DRUG INEFFECTIVE [None]
